FAERS Safety Report 4944265-6 (Version None)
Quarter: 2006Q1

REPORT INFORMATION
  Report Type: 
  Country: None (occurrence: None)
  Receive Date: 20060315
  Receipt Date: 20060118
  Transmission Date: 20060701
  Serious: Yes (Hospitalization)
  Sender: FDA-Public Use
  Company Number: 2006AP00352

PATIENT
  Age: 21237 Day
  Sex: Female

DRUGS (12)
  1. IRESSA [Suspect]
     Indication: NON-SMALL CELL LUNG CANCER
     Route: 048
     Dates: start: 20051222, end: 20060116
  2. IRESSA [Concomitant]
     Route: 048
     Dates: start: 20020716, end: 20040801
  3. ASPIRIN [Concomitant]
     Indication: THROMBOSIS PROPHYLAXIS
     Route: 048
     Dates: start: 20051227, end: 20060116
  4. AMLODIN [Concomitant]
     Indication: HYPERTENSION
     Route: 048
  5. KEISHI-BUKURYO-GAN [Concomitant]
     Indication: NON-SMALL CELL LUNG CANCER
     Route: 048
     Dates: start: 20051001
  6. EBIOS [Concomitant]
     Indication: NON-SMALL CELL LUNG CANCER
     Route: 048
     Dates: start: 20051001
  7. CARBOPLATIN [Concomitant]
     Dosage: 6 COURSES
     Dates: start: 20010701, end: 20020401
  8. CARBOPLATIN [Concomitant]
     Dosage: 6 COURSES
     Dates: start: 20040801, end: 20050301
  9. CISPLATIN [Concomitant]
     Dosage: 5 COURSES
     Dates: start: 19980901, end: 19990101
  10. TAXOL [Concomitant]
     Dosage: 6 COURSES
     Dates: start: 20010701, end: 20020401
  11. TAXOL [Concomitant]
     Dosage: 6 COURSES
     Dates: start: 20040801, end: 20050301
  12. TAXOTERE [Concomitant]
     Dosage: 5 COURSES
     Dates: start: 19980901, end: 19990101

REACTIONS (2)
  - PLATELET COUNT DECREASED [None]
  - PURPURA [None]
